FAERS Safety Report 25433960 (Version 1)
Quarter: 2025Q2

REPORT INFORMATION
  Report Type: Spontaneous
  Country: AR (occurrence: AR)
  Receive Date: 20250613
  Receipt Date: 20250613
  Transmission Date: 20250717
  Serious: Yes (Hospitalization, Other)
  Sender: PFIZER
  Company Number: AR-PFIZER INC-202500120801

PATIENT
  Age: 54 Year
  Sex: Female

DRUGS (2)
  1. BRAFTOVI [Suspect]
     Active Substance: ENCORAFENIB
     Indication: Lung cancer metastatic
     Dates: start: 20250607
  2. MEKTOVI [Suspect]
     Active Substance: BINIMETINIB
     Indication: Lung cancer metastatic

REACTIONS (1)
  - Pericardial effusion [Unknown]
